FAERS Safety Report 4595055-8 (Version None)
Quarter: 2005Q1

REPORT INFORMATION
  Report Type: 
  Country: None (occurrence: None)
  Receive Date: 20050223
  Receipt Date: 20050210
  Transmission Date: 20050727
  Serious: Yes (Other)
  Sender: FDA-Public Use
  Company Number: 105515ISR

PATIENT
  Sex: Female

DRUGS (2)
  1. FLUOROURACIL [Suspect]
     Dosage: INTRAVENOUS (NOS)
     Route: 042
  2. METOCLOPRAMIDE [Suspect]

REACTIONS (3)
  - DISTURBANCE IN ATTENTION [None]
  - MEMORY IMPAIRMENT [None]
  - VERTIGO [None]
